FAERS Safety Report 8885734 (Version 1)
Quarter: 2012Q4

REPORT INFORMATION
  Report Type: Report from Study
  Country: DE (occurrence: DE)
  Receive Date: 20121105
  Receipt Date: 20121105
  Transmission Date: 20130627
  Serious: Yes (Hospitalization, Other)
  Sender: FDA-Public Use
  Company Number: PHHY2012DE099528

PATIENT
  Sex: Male
  Weight: 100 kg

DRUGS (3)
  1. FTY 720 [Suspect]
     Indication: MULTIPLE SCLEROSIS
     Dosage: 0.5 mg, QD
     Route: 048
     Dates: start: 20110510
  2. GABAPENTIN [Concomitant]
     Indication: TRIGEMINAL NEURALGIA
     Dosage: 1 DF, TID
     Route: 048
     Dates: start: 200903
  3. LYRICA [Concomitant]
     Indication: TRIGEMINAL NEURALGIA
     Dosage: 1 DF, TID
     Route: 048
     Dates: start: 20110622

REACTIONS (1)
  - Peripheral arterial occlusive disease [Recovered/Resolved]
